FAERS Safety Report 4312200-X (Version None)
Quarter: 2004Q1

REPORT INFORMATION
  Report Type: 
  Country: None (occurrence: None)
  Receive Date: 20040303
  Receipt Date: 20040224
  Transmission Date: 20041129
  Serious: Yes (Hospitalization)
  Sender: FDA-Public Use
  Company Number: 2004197745US

PATIENT
  Age: 61 Year
  Sex: Female
  Weight: 68 kg

DRUGS (4)
  1. BEXTRA [Suspect]
     Indication: ARTHRITIS
     Dosage: 10 MG, QD
     Dates: start: 20030908, end: 20031219
  2. ZOCOR [Concomitant]
  3. ESTRATEST [Concomitant]
  4. AMBIEN [Concomitant]

REACTIONS (4)
  - ARTHRALGIA [None]
  - BALANCE DISORDER [None]
  - HAEMORRHAGIC STROKE [None]
  - VISUAL DISTURBANCE [None]
